FAERS Safety Report 4803353-5 (Version None)
Quarter: 2005Q3

REPORT INFORMATION
  Report Type: 
  Country: None (occurrence: None)
  Receive Date: 20050929
  Receipt Date: 20050803
  Transmission Date: 20060218
  Serious: Yes (Hospitalization)
  Sender: FDA-Public Use
  Company Number: 05P-163-0307426-00

PATIENT
  Age: 72 Year
  Sex: Male
  Weight: 116 kg

DRUGS (5)
  1. HUMIRA [Suspect]
     Indication: RHEUMATOID ARTHRITIS
     Dosage: 40 MG, 1 IN 2 WK, SUBCUTANEOUS
     Route: 058
     Dates: start: 20030101, end: 20041001
  2. METHOTREXATE [Concomitant]
  3. MULTI-VITAMINS [Concomitant]
  4. SULTOPRIDE [Concomitant]
  5. DIOVAN [Concomitant]

REACTIONS (4)
  - ATRIAL FIBRILLATION [None]
  - BLISTER INFECTED [None]
  - CELLULITIS [None]
  - HYPOAESTHESIA [None]
